FAERS Safety Report 8965836 (Version 1)
Quarter: 2012Q4

REPORT INFORMATION
  Report Type: Spontaneous
  Country: DE (occurrence: None)
  Receive Date: 20121206
  Receipt Date: 20121206
  Transmission Date: 20130627
  Serious: Yes (Hospitalization)
  Sender: FDA-Public Use
  Company Number: DSA_61137_2012

PATIENT
  Age: 80 Year
  Sex: Male

DRUGS (14)
  1. ELONTRIL [Suspect]
     Indication: DEPRESSION
     Route: 048
     Dates: start: 20120625, end: 20120703
  2. ELONTRIL [Suspect]
     Indication: DEPRESSION
     Route: 048
     Dates: start: 20120601, end: 20120624
  3. ELONTRIL [Suspect]
     Indication: DEPRESSION
     Route: 048
     Dates: start: 20120703, end: 20120708
  4. MOXONIDINE [Concomitant]
  5. PANTOPRAZOLE [Concomitant]
  6. ASS [Concomitant]
  7. RIVOTRIL [Concomitant]
  8. NACL [Concomitant]
  9. SIMVASTATIN [Concomitant]
  10. LYRICA [Concomitant]
  11. DELMUNO [Concomitant]
  12. BISOPROLOL [Concomitant]
  13. INDAPAMIDE [Concomitant]
  14. ALDACTONE /00006201/ [Concomitant]

REACTIONS (1)
  - Alanine aminotransferase increased [None]
